FAERS Safety Report 7538701-9 (Version None)
Quarter: 2011Q2

REPORT INFORMATION
  Report Type: 
  Country: None (occurrence: None)
  Receive Date: 20110610
  Receipt Date: 20110531
  Transmission Date: 20111010
  Serious: Yes (Hospitalization)
  Sender: FDA-Public Use
  Company Number: NL-AMGEN-NLDSP2011020444

PATIENT
  Age: 57 Year
  Sex: Female
  Weight: 95 kg

DRUGS (5)
  1. AZATHIOPRINE [Concomitant]
     Dosage: UNK
  2. ACTONEL [Concomitant]
     Dosage: UNK
  3. PREDNISONE [Concomitant]
     Dosage: UNK
  4. ENBREL [Suspect]
     Dosage: UNK
     Dates: start: 20110505
  5. ENBREL [Suspect]
     Indication: RHEUMATOID ARTHRITIS
     Dosage: 50 MG, WEEKLY
     Dates: start: 20101028, end: 20110203

REACTIONS (1)
  - RENAL FAILURE [None]
